FAERS Safety Report 6144652-7 (Version None)
Quarter: 2009Q2

REPORT INFORMATION
  Report Type: 
  Country: None (occurrence: None)
  Receive Date: 20090406
  Receipt Date: 20090331
  Transmission Date: 20091009
  Serious: Yes (Hospitalization)
  Sender: FDA-Public Use
  Company Number: A0776172A

PATIENT
  Age: 68 Year
  Sex: Male

DRUGS (9)
  1. AVANDIA [Suspect]
     Dosage: 4MG PER DAY
     Route: 048
     Dates: start: 20090101
  2. LEVOXYL [Concomitant]
  3. WARFARIN SODIUM [Concomitant]
  4. SIMVASTATIN [Concomitant]
  5. PROTONIX [Concomitant]
  6. LISINOPRIL [Concomitant]
  7. SINGULAIR [Concomitant]
  8. OXYGEN THERAPY [Concomitant]
  9. ADVAIR HFA [Concomitant]

REACTIONS (2)
  - ANAEMIA [None]
  - PULMONARY EMBOLISM [None]
